FAERS Safety Report 6940874-3 (Version None)
Quarter: 2010Q3

REPORT INFORMATION
  Report Type: 
  Country: None (occurrence: None)
  Receive Date: 20100825
  Receipt Date: 20100818
  Transmission Date: 20110219
  Serious: Yes (Other)
  Sender: FDA-Public Use
  Company Number: DE-MERCK-1008USA02939

PATIENT
  Age: 20 Year
  Sex: Male

DRUGS (2)
  1. DECADRON [Suspect]
     Route: 048
  2. METHYLPREDNISOLONE [Suspect]
     Route: 065

REACTIONS (1)
  - DRUG INEFFECTIVE [None]
